FAERS Safety Report 9828519 (Version 2)
Quarter: 2014Q1

REPORT INFORMATION
  Report Type: Spontaneous
  Country: IT (occurrence: IT)
  Receive Date: 20140117
  Receipt Date: 20140117
  Transmission Date: 20141002
  Serious: Yes (Hospitalization)
  Sender: FDA-Public Use
  Company Number: IT-PFIZER INC-2014011740

PATIENT
  Age: 29 Year
  Sex: Male

DRUGS (7)
  1. AMOXICILLIN TRIHYDRATE\CLAVULANATE POTASSIUM [Suspect]
     Indication: TONSILLITIS
     Dosage: UNK
  2. AMOXICILLIN TRIHYDRATE/CLAVULANATE POTASSIUM [Suspect]
     Indication: PYREXIA
  3. IBUPROFEN [Suspect]
     Dosage: UNK
  4. PARACETAMOL [Suspect]
     Dosage: UNK
  5. METAMIZOLE [Suspect]
     Dosage: UNK
  6. CEFIXIME [Concomitant]
     Dosage: UNK
  7. KETOPROFEN [Concomitant]
     Dosage: UNK

REACTIONS (1)
  - Acute generalised exanthematous pustulosis [Recovered/Resolved]
